FAERS Safety Report 17127690 (Version 1)
Quarter: 2019Q4

REPORT INFORMATION
  Report Type: Spontaneous
  Country: US (occurrence: US)
  Receive Date: 20191206
  Receipt Date: 20191206
  Transmission Date: 20200122
  Serious: Yes (Hospitalization)
  Sender: FDA-Public Use
  Company Number: None

PATIENT
  Age: 42 Year
  Sex: Female

DRUGS (14)
  1. FUROSEMIDE. [Concomitant]
     Active Substance: FUROSEMIDE
  2. VITAMIN D3 [Concomitant]
     Active Substance: CHOLECALCIFEROL
  3. VALACYCLOVIR [Concomitant]
     Active Substance: VALACYCLOVIR HYDROCHLORIDE
  4. CAPECITABINE. [Suspect]
     Active Substance: CAPECITABINE
     Indication: BREAST CANCER FEMALE
     Route: 048
  5. IMODIUM [Concomitant]
     Active Substance: LOPERAMIDE HYDROCHLORIDE
  6. LETROZOLE. [Concomitant]
     Active Substance: LETROZOLE
  7. DEXAMETHASONE. [Concomitant]
     Active Substance: DEXAMETHASONE
  8. HYDROMORPHONE [Concomitant]
     Active Substance: HYDROMORPHONE
  9. PNDANSETRON [Concomitant]
  10. ASPIRIN. [Concomitant]
     Active Substance: ASPIRIN
  11. IBRANCE [Concomitant]
     Active Substance: PALBOCICLIB
  12. MULTIVITAMIN [Concomitant]
     Active Substance: VITAMINS
  13. TRAMADOL. [Concomitant]
     Active Substance: TRAMADOL
  14. CLARITIN [Concomitant]
     Active Substance: LORATADINE

REACTIONS (2)
  - Head injury [None]
  - Fall [None]

NARRATIVE: CASE EVENT DATE: 20191125
